FAERS Safety Report 6358607-0 (Version None)
Quarter: 2009Q3

REPORT INFORMATION
  Report Type: 
  Country: None (occurrence: None)
  Receive Date: 20090916
  Receipt Date: 20090901
  Transmission Date: 20100115
  Serious: Yes (Hospitalization)
  Sender: FDA-Public Use
  Company Number: JP-PFIZER INC-2009232636

PATIENT
  Age: 73 Year

DRUGS (7)
  1. MIGLITOL [Suspect]
     Indication: DIABETES MELLITUS
     Dosage: UNK
     Route: 048
     Dates: start: 20090602, end: 20090618
  2. METFORMIN HCL [Concomitant]
     Dosage: UNK
     Route: 048
  3. AMARYL [Concomitant]
     Dosage: UNK
     Route: 048
     Dates: end: 20090618
  4. ASPIRIN [Concomitant]
     Route: 048
  5. SERMION [Concomitant]
     Route: 048
  6. ARICEPT [Concomitant]
     Route: 048
  7. PLAVIX [Concomitant]
     Dosage: UNK
     Route: 048
     Dates: end: 20090618

REACTIONS (1)
  - LEUKOPENIA [None]
